FAERS Safety Report 9937320 (Version 1)
Quarter: 2014Q1

REPORT INFORMATION
  Report Type: Spontaneous
  Country: US (occurrence: US)
  Receive Date: 20140302
  Receipt Date: 20140302
  Transmission Date: 20141002
  Serious: No
  Sender: FDA-Public Use
  Company Number: US-TEVA-464153USA

PATIENT
  Sex: Female
  Weight: 99.88 kg

DRUGS (3)
  1. NUVIGIL [Suspect]
     Indication: SLEEP APNOEA SYNDROME
     Route: 048
     Dates: start: 2010
  2. PROZAC [Concomitant]
     Indication: DEPRESSION
  3. ADVAIR [Concomitant]
     Indication: ASTHMA

REACTIONS (3)
  - Somnolence [Unknown]
  - Drug tolerance [Unknown]
  - Off label use [Unknown]
